FAERS Safety Report 6092086-6 (Version None)
Quarter: 2009Q1

REPORT INFORMATION
  Report Type: 
  Country: None (occurrence: None)
  Receive Date: 20090225
  Receipt Date: 20090218
  Transmission Date: 20090719
  Serious: Yes (Other)
  Sender: FDA-Public Use
  Company Number: US-PFIZER INC-2009172487

PATIENT
  Sex: Female
  Weight: 30.385 kg

DRUGS (3)
  1. CELEBREX [Suspect]
     Indication: OSTEOARTHRITIS
     Dates: start: 20090210, end: 20090217
  2. CELEBREX [Suspect]
     Indication: FIBROMYALGIA
  3. ZANAFLEX [Concomitant]
     Dosage: UNK

REACTIONS (3)
  - ASTHMA [None]
  - DRUG INEFFECTIVE [None]
  - DYSPNOEA [None]
